FAERS Safety Report 13984386 (Version 1)
Quarter: 2017Q3

REPORT INFORMATION
  Report Type: Spontaneous
  Country: US (occurrence: US)
  Receive Date: 20170918
  Receipt Date: 20170918
  Transmission Date: 20171128
  Serious: Yes (Other)
  Sender: FDA-Public Use
  Company Number: US-BAXTER-2017BAX031777

PATIENT
  Age: 0 Day
  Sex: Female

DRUGS (1)
  1. 10% DEXTROSE INJECTION, USP [Suspect]
     Active Substance: DEXTROSE
     Indication: HYPOGLYCAEMIA NEONATAL
     Dosage: 11.5 CC PER HOUR
     Route: 065
     Dates: start: 20170816, end: 20170816

REACTIONS (3)
  - Product quality issue [Unknown]
  - Hypoglycaemia neonatal [Recovered/Resolved]
  - Poor quality drug administered [Unknown]

NARRATIVE: CASE EVENT DATE: 20170816
